FAERS Safety Report 24848777 (Version 1)
Quarter: 2025Q1

REPORT INFORMATION
  Report Type: Spontaneous
  Country: US (occurrence: US)
  Receive Date: 20250116
  Receipt Date: 20250116
  Transmission Date: 20250409
  Serious: Yes (Other)
  Sender: DR REDDYS
  Company Number: US-DRL-USA-USA/2025/01/000644

PATIENT
  Age: 10 Year
  Sex: Female

DRUGS (1)
  1. SIROLIMUS [Suspect]
     Active Substance: SIROLIMUS
     Indication: Lymphatic malformation

REACTIONS (3)
  - Loss of personal independence in daily activities [Unknown]
  - Oral pain [Unknown]
  - Drug ineffective for unapproved indication [Unknown]
